FAERS Safety Report 20774300 (Version 1)
Quarter: 2022Q2

REPORT INFORMATION
  Report Type: Spontaneous
  Country: US (occurrence: None)
  Receive Date: 20220429
  Receipt Date: 20220429
  Transmission Date: 20220721
  Serious: Yes (Other)
  Sender: FDA-Public Use
  Company Number: None

PATIENT
  Age: 61 Year
  Sex: Female
  Weight: 81 kg

DRUGS (1)
  1. ESTRADIOL TRANSDERMAL SYSTEM [Suspect]
     Active Substance: ESTRADIOL
     Indication: Autonomic nervous system imbalance
     Dosage: FREQUENCY : TWICE A WEEK;?
     Route: 061
     Dates: start: 20220428, end: 20220429

REACTIONS (12)
  - Product substitution issue [None]
  - Hot flush [None]
  - Blood pressure increased [None]
  - Headache [None]
  - Peripheral swelling [None]
  - Tachycardia [None]
  - Crying [None]
  - Erythema [None]
  - Erythema [None]
  - Dizziness [None]
  - Tunnel vision [None]
  - Dizziness [None]

NARRATIVE: CASE EVENT DATE: 20220429
